FAERS Safety Report 21795016 (Version 1)
Quarter: 2022Q4

REPORT INFORMATION
  Report Type: Spontaneous
  Country: FR (occurrence: FR)
  Receive Date: 20221229
  Receipt Date: 20221229
  Transmission Date: 20230113
  Serious: Yes (Hospitalization)
  Sender: FDA-Public Use
  Company Number: None

PATIENT
  Age: 58 Year
  Sex: Male
  Weight: 81.7 kg

DRUGS (5)
  1. KEYTRUDA [Suspect]
     Active Substance: PEMBROLIZUMAB
     Indication: Renal cancer
     Dosage: 200 MILLIGRAM
     Route: 042
     Dates: start: 20211208
  2. INLYTA [Suspect]
     Active Substance: AXITINIB
     Indication: Renal cancer
     Route: 048
     Dates: start: 20211208, end: 20221206
  3. ACETAMINOPHEN [Concomitant]
     Active Substance: ACETAMINOPHEN
  4. NEFOPAM [Concomitant]
     Active Substance: NEFOPAM
  5. INNOHEP [Concomitant]
     Active Substance: TINZAPARIN SODIUM

REACTIONS (2)
  - Pulmonary embolism [Recovering/Resolving]
  - Pulmonary infarction [Recovering/Resolving]

NARRATIVE: CASE EVENT DATE: 20221206
